FAERS Safety Report 9482650 (Version 5)
Quarter: 2013Q4

REPORT INFORMATION
  Report Type: Report from Study
  Country: NL (occurrence: NL)
  Receive Date: 20130828
  Receipt Date: 20131101
  Transmission Date: 20140711
  Serious: Yes (Other)
  Sender: FDA-Public Use
  Company Number: NL-BAXTER-2013BAX033156

PATIENT
  Age: 64 Year
  Sex: Female

DRUGS (3)
  1. KIOVIG 100 MG/ML OPLOSSING VOOR INFUSIE (20 G/200 ML) [Suspect]
     Indication: CHRONIC INFLAMMATORY DEMYELINATING POLYRADICULONEUROPATHY
     Route: 065
     Dates: start: 20080115
  2. KIOVIG 100 MG/ML OPLOSSING VOOR INFUSIE (20 G/200 ML) [Suspect]
     Indication: OFF LABEL USE
     Route: 065
     Dates: start: 20130820, end: 20130820
  3. KIOVIG 100 MG/ML OPLOSSING VOOR INFUSIE (20 G/200 ML) [Suspect]
     Route: 065

REACTIONS (4)
  - Anaphylactic reaction [Unknown]
  - Urticaria [Unknown]
  - Pruritus [Unknown]
  - Lip swelling [Unknown]
